FAERS Safety Report 23076085 (Version 1)
Quarter: 2023Q4

REPORT INFORMATION
  Report Type: Spontaneous
  Country: NL (occurrence: NL)
  Receive Date: 20231017
  Receipt Date: 20231017
  Transmission Date: 20240109
  Serious: Yes (Other)
  Sender: FDA-Public Use
  Company Number: None

PATIENT
  Age: 79 Year
  Sex: Male
  Weight: 99 kg

DRUGS (1)
  1. EPLERENONE [Suspect]
     Active Substance: EPLERENONE
     Indication: Hypertension
     Dosage: 1 DOSAGE FORM, QD (1X PER DAY BEFORE BED)
     Route: 065
     Dates: start: 20230904, end: 20230913

REACTIONS (5)
  - Angina pectoris [Not Recovered/Not Resolved]
  - Micturition disorder [Recovering/Resolving]
  - Renal pain [Not Recovered/Not Resolved]
  - Constipation [Not Recovered/Not Resolved]
  - Hyperhidrosis [Not Recovered/Not Resolved]
